FAERS Safety Report 5282020-0 (Version None)
Quarter: 2007Q1

REPORT INFORMATION
  Report Type: 
  Country: None (occurrence: None)
  Receive Date: 20070330
  Receipt Date: 20070322
  Transmission Date: 20070707
  Serious: Yes (Other)
  Sender: FDA-Public Use
  Company Number: IT-ABBOTT-07P-083-0362840-00

PATIENT
  Age: 48 Year
  Sex: Female
  Weight: 58 kg

DRUGS (4)
  1. VALPROATE SODIUM [Suspect]
     Indication: COMPLEX PARTIAL SEIZURES
     Route: 048
     Dates: end: 20060324
  2. LEVETIRACETAM [Interacting]
     Indication: COMPLEX PARTIAL SEIZURES
     Route: 048
     Dates: start: 20060304, end: 20060311
  3. LEVETIRACETAM [Interacting]
     Route: 048
     Dates: start: 20060311
  4. CARBAMAZEPINE [Concomitant]
     Indication: COMPLEX PARTIAL SEIZURES
     Route: 048
     Dates: start: 20060324

REACTIONS (6)
  - AGITATION [None]
  - ANXIETY [None]
  - DRUG EFFECT DECREASED [None]
  - DRUG INTERACTION [None]
  - INSOMNIA [None]
  - MENTAL DISORDER [None]
